FAERS Safety Report 24326200 (Version 1)
Quarter: 2024Q3

REPORT INFORMATION
  Report Type: Spontaneous
  Country: FR (occurrence: FR)
  Receive Date: 20240917
  Receipt Date: 20240917
  Transmission Date: 20241016
  Serious: Yes (Other)
  Sender: SANDOZ
  Company Number: FR-NOVPHSZ-PHHY2018FR001753

PATIENT
  Age: 46 Year
  Sex: Female
  Weight: 61 kg

DRUGS (8)
  1. FLUOROURACIL [Suspect]
     Active Substance: FLUOROURACIL
     Indication: Intraductal proliferative breast lesion
     Dosage: (3 COURSES), CYCLIC
     Route: 065
  2. FLUOROURACIL [Suspect]
     Active Substance: FLUOROURACIL
     Indication: Invasive ductal breast carcinoma
     Dosage: UNK, CYCLIC (3 CYCLES)
     Route: 065
  3. CYCLOPHOSPHAMIDE [Suspect]
     Active Substance: CYCLOPHOSPHAMIDE
     Indication: Intraductal proliferative breast lesion
     Dosage: (3 COURSES), CYCLIC
     Route: 065
  4. CYCLOPHOSPHAMIDE [Suspect]
     Active Substance: CYCLOPHOSPHAMIDE
     Indication: Invasive ductal breast carcinoma
  5. DOCETAXEL [Suspect]
     Active Substance: DOCETAXEL\DOCETAXEL ANHYDROUS
     Indication: Intraductal proliferative breast lesion
     Dosage: (3 COURSES), 3CYCLIC
     Route: 065
     Dates: start: 201005, end: 201009
  6. DOCETAXEL [Suspect]
     Active Substance: DOCETAXEL\DOCETAXEL ANHYDROUS
     Indication: Invasive ductal breast carcinoma
     Dosage: UNK, CYCLIC, (3 CYCLES)
     Route: 065
  7. EPIRUBICIN HYDROCHLORIDE [Suspect]
     Active Substance: EPIRUBICIN HYDROCHLORIDE
     Indication: Invasive ductal breast carcinoma
     Dosage: UNK, (3 COURSES)
     Route: 065
  8. EPIRUBICIN HYDROCHLORIDE [Suspect]
     Active Substance: EPIRUBICIN HYDROCHLORIDE
     Dosage: UNK, CYCLIC (3 CYCLES)
     Route: 065

REACTIONS (7)
  - Sarcoidosis [Recovering/Resolving]
  - General physical health deterioration [Recovering/Resolving]
  - Weight decreased [Unknown]
  - Asthenia [Unknown]
  - Dyspnoea [Recovering/Resolving]
  - Decreased appetite [Unknown]
  - Arthralgia [Unknown]
